FAERS Safety Report 19611566 (Version 1)
Quarter: 2021Q3

REPORT INFORMATION
  Report Type: Spontaneous
  Country: CA (occurrence: CA)
  Receive Date: 20210726
  Receipt Date: 20210726
  Transmission Date: 20211014
  Serious: Yes (Other)
  Sender: FDA-Public Use
  Company Number: CA-HLS-202108101

PATIENT
  Age: 64 Year
  Sex: Female

DRUGS (19)
  1. CITALOPRAM [Suspect]
     Active Substance: CITALOPRAM HYDROBROMIDE
     Indication: PRODUCT USED FOR UNKNOWN INDICATION
     Dosage: 40.0 MILLIGRAM 1 EVERY 1 DAYS
     Route: 065
  2. PANTOPRAZOLE [Concomitant]
     Active Substance: PANTOPRAZOLE
     Dosage: 40.0 MILLIGRAM 1 EVERY 1 DAYS
     Route: 065
  3. CLOZAPINE. [Suspect]
     Active Substance: CLOZAPINE
     Indication: SCHIZOPHRENIA
     Dosage: 600.0 MILLIGRAM 1 EVERY 1 DAYS
     Route: 065
  4. CITALOPRAM [Suspect]
     Active Substance: CITALOPRAM HYDROBROMIDE
     Indication: PRODUCT USED FOR UNKNOWN INDICATION
     Dosage: 30.0 MILLIGRAM 1 EVERY 1 DAYS
     Route: 065
  5. FLURAZEPAM [Suspect]
     Active Substance: FLURAZEPAM HYDROCHLORIDE
     Dosage: 30.0 MILLIGRAM 1 EVERY 1 DAYS
     Route: 065
  6. ATORVASTATIN CALCIUM. [Concomitant]
     Active Substance: ATORVASTATIN CALCIUM
     Dosage: 10.0 MILLIGRAM 1 EVERY 1 DAYS
     Route: 065
  7. CLOZAPINE. [Suspect]
     Active Substance: CLOZAPINE
     Indication: SCHIZOPHRENIA
     Dosage: 550.0 MILLIGRAM 1 EVERY 1 DAYS
     Route: 065
  8. PROCYCLIDINE [Suspect]
     Active Substance: PROCYCLIDINE
     Indication: PRODUCT USED FOR UNKNOWN INDICATION
     Dosage: 2.5 MILLIGRAM 2 EVERY 1 DAYS
     Route: 065
  9. CLOZAPINE. [Suspect]
     Active Substance: CLOZAPINE
     Indication: SCHIZOPHRENIA
     Dosage: 500.0 MILLIGRAM 1 EVERY 1 DAYS
     Route: 065
  10. CLOZAPINE. [Suspect]
     Active Substance: CLOZAPINE
     Indication: SCHIZOPHRENIA
     Dosage: 700.0 MILLIGRAM 1 EVERY 1 DAYS
     Route: 065
  11. CITALOPRAM [Suspect]
     Active Substance: CITALOPRAM HYDROBROMIDE
     Indication: PRODUCT USED FOR UNKNOWN INDICATION
     Dosage: 20.0 MILLIGRAM 1 EVERY 1 DAYS
     Route: 065
  12. BISOPROLOL [Concomitant]
     Active Substance: BISOPROLOL
     Indication: PRODUCT USED FOR UNKNOWN INDICATION
     Dosage: 2.5 MILLIGRAM 1 EVERY 1 DAYS
     Route: 065
  13. CLOZAPINE. [Suspect]
     Active Substance: CLOZAPINE
     Indication: SCHIZOPHRENIA
     Dosage: 400.0 MILLIGRAM 1 EVERY 1 DAYS
     Route: 065
  14. CALCIUM PHOSPHATE/CALCIUM SODIUM LACTATE/ERGOCALCI [Concomitant]
     Dosage: UNKNOWN, EVERY .5 DAYS
     Route: 065
  15. PROCYCLIDINE [Suspect]
     Active Substance: PROCYCLIDINE
     Indication: PRODUCT USED FOR UNKNOWN INDICATION
     Dosage: 5.0 MILLIGRAM 2 EVERY 1 DAYS
     Route: 065
  16. VITAMIN B12 [Concomitant]
     Active Substance: CYANOCOBALAMIN
     Dosage: 1200.0 MICROGRAM, 1 EVERY 1 DAYS
     Route: 065
  17. OXYBUTYNIN. [Suspect]
     Active Substance: OXYBUTYNIN CHLORIDE
     Indication: PRODUCT USED FOR UNKNOWN INDICATION
     Dosage: 5.0 MILLIGRAM 1 EVERY 1 DAYS
     Route: 065
  18. ACETAMINOPHEN. [Concomitant]
     Active Substance: ACETAMINOPHEN
     Dosage: UNKNOWN
     Route: 065
  19. CELECOXIB. [Concomitant]
     Active Substance: CELECOXIB
     Indication: PRODUCT USED FOR UNKNOWN INDICATION
     Dosage: 200.0 MILLIGRAM 1 EVERY 1 DAYS
     Route: 065

REACTIONS (15)
  - Confusional state [Recovered/Resolved]
  - Hypotension [Recovered/Resolved]
  - Intestinal obstruction [Recovered/Resolved]
  - General physical health deterioration [Recovered/Resolved]
  - Ileus paralytic [Recovered/Resolved]
  - Neutropenia [Recovered/Resolved]
  - Sepsis [Recovered/Resolved]
  - Faecaloma [Recovered/Resolved]
  - Lethargy [Recovered/Resolved]
  - Sedation [Recovered/Resolved]
  - Acute kidney injury [Recovered/Resolved]
  - Constipation [Recovered/Resolved]
  - Hypokalaemia [Recovered/Resolved]
  - Somnolence [Recovered/Resolved]
  - Toxicity to various agents [Recovered/Resolved]
